FAERS Safety Report 7329154-4 (Version None)
Quarter: 2011Q1

REPORT INFORMATION
  Report Type: 
  Country: None (occurrence: None)
  Receive Date: 20110303
  Receipt Date: 20110224
  Transmission Date: 20110831
  Serious: Yes (Death)
  Sender: FDA-Public Use
  Company Number: A0725421A

PATIENT
  Age: 61 Year
  Sex: Female
  Weight: 105.9 kg

DRUGS (14)
  1. ADVAIR DISKUS 100/50 [Concomitant]
  2. HUMALOG [Concomitant]
     Dates: start: 20010101
  3. GLUCOPHAGE [Concomitant]
     Dates: start: 20010101
  4. ENALAPRIL MALEATE [Concomitant]
  5. PAXIL [Concomitant]
  6. ATROVENT [Concomitant]
  7. BUSPAR [Concomitant]
  8. AVANDIA [Suspect]
     Dosage: 4MG PER DAY
     Route: 048
     Dates: end: 20060109
  9. SINGULAIR [Concomitant]
  10. LASIX [Concomitant]
  11. FLEXERIL [Concomitant]
  12. XANAX [Concomitant]
  13. ELAVIL [Concomitant]
  14. LIPITOR [Concomitant]

REACTIONS (3)
  - CARDIAC FAILURE CONGESTIVE [None]
  - ARTERIOSCLEROSIS [None]
  - MYOCARDIAL INFARCTION [None]
